FAERS Safety Report 5017935-1 (Version None)
Quarter: 2006Q2

REPORT INFORMATION
  Report Type: 
  Country: None (occurrence: None)
  Receive Date: 20060605
  Receipt Date: 20060530
  Transmission Date: 20061013
  Serious: Yes (Hospitalization)
  Sender: FDA-Public Use
  Company Number: US-GLAXOSMITHKLINE-A0607245A

PATIENT
  Age: 24 Year
  Sex: Male

DRUGS (4)
  1. FLOVENT [Suspect]
     Indication: ASTHMA
     Dosage: 1PUFF TWICE PER DAY
     Route: 055
     Dates: start: 20060410, end: 20060517
  2. PAROXETINE HYDROCHLORIDE [Suspect]
     Indication: PANIC DISORDER
     Dosage: 20MG UNKNOWN
     Route: 048
     Dates: start: 20060410, end: 20060509
  3. ALBUTEROL SULFATE AUTOHALER [Suspect]
     Route: 055
  4. LEXAPRO [Concomitant]

REACTIONS (17)
  - ASTHENIA [None]
  - BONE MARROW FAILURE [None]
  - DIARRHOEA [None]
  - DRUG INEFFECTIVE [None]
  - DYSPNOEA [None]
  - EPISTAXIS [None]
  - EXPOSURE TO TOXIC AGENT [None]
  - GENERAL PHYSICAL HEALTH DETERIORATION [None]
  - HAEMATEMESIS [None]
  - IMMUNE SYSTEM DISORDER [None]
  - MALAISE [None]
  - NAUSEA [None]
  - PALLOR [None]
  - PANIC ATTACK [None]
  - PHARMACEUTICAL PRODUCT COMPLAINT [None]
  - PLATELET COUNT DECREASED [None]
  - RENAL FAILURE ACUTE [None]
